FAERS Safety Report 18981348 (Version 1)
Quarter: 2021Q1

REPORT INFORMATION
  Report Type: Spontaneous
  Country: CN (occurrence: CN)
  Receive Date: 20210308
  Receipt Date: 20210308
  Transmission Date: 20210420
  Serious: Yes (Other)
  Sender: FDA-Public Use
  Company Number: CN-FRESENIUS KABI-FK202102152

PATIENT
  Age: 45 Year
  Sex: Female

DRUGS (4)
  1. BUPIVACAINE (MANUFACTURER UNKNOWN) [Suspect]
     Active Substance: BUPIVACAINE
     Indication: ANAESTHESIA
     Route: 037
  2. ROPIVACAINE (MANUFACTURER UNKNOWN) [Suspect]
     Active Substance: ROPIVACAINE
     Indication: PROCEDURAL PAIN
     Route: 008
  3. ROPIVACAINE (MANUFACTURER UNKNOWN) [Suspect]
     Active Substance: ROPIVACAINE
     Dosage: MIXED SOLUTION WITH 4MG/L FENTANYL AT A BASAL RATE OF 2ML/HOUR
     Route: 008
  4. FENTANYL. [Concomitant]
     Active Substance: FENTANYL
     Indication: PROCEDURAL PAIN
     Dosage: MIXED SOLUTION OF 0.2 PERCENT  ROPIVACAINE  AT BASAL RATE OF 2ML/HOUR
     Route: 008

REACTIONS (5)
  - Neurotoxicity [Recovered/Resolved with Sequelae]
  - Vocal cord paralysis [Recovered/Resolved with Sequelae]
  - Hypotension [Recovered/Resolved]
  - Cauda equina syndrome [Recovered/Resolved with Sequelae]
  - Intracranial hypotension [Recovered/Resolved]
